FAERS Safety Report 18711721 (Version 1)
Quarter: 2021Q1

REPORT INFORMATION
  Report Type: Spontaneous
  Country: US (occurrence: US)
  Receive Date: 20210107
  Receipt Date: 20210107
  Transmission Date: 20210419
  Serious: Yes (Other)
  Sender: FDA-Public Use
  Company Number: US-FRESENIUS KABI-FK202100121

PATIENT
  Age: 32 Year
  Sex: Male

DRUGS (4)
  1. ETOPOSIDE. [Concomitant]
     Active Substance: ETOPOSIDE
     Indication: TESTIS CANCER
     Dosage: 4 CYCLES OF CHEMOTHERAPY COMPRISED OF 5 DAYS
     Route: 065
  2. IFOSFAMIDE (MANUFACTURER UNKNOWN) [Suspect]
     Active Substance: IFOSFAMIDE
     Indication: TESTIS CANCER
     Dosage: 4 CYCLES OF CHEMOTHERAPY COMPRISED OF 5 DAYS
     Route: 065
  3. MESNA. [Concomitant]
     Active Substance: MESNA
     Indication: TESTIS CANCER
     Dosage: 4 CYCLES OF CHEMOTHERAPY COMPRISED OF 5 DAYS
     Route: 065
  4. CISPLATIN (MANUFACTURER UNKNOWN) [Suspect]
     Active Substance: CISPLATIN
     Indication: TESTIS CANCER
     Dosage: 4 CYCLES OF CHEMOTHERAPY COMPRISED OF 5 DAYS
     Route: 065

REACTIONS (1)
  - Fanconi syndrome [Recovered/Resolved]
